FAERS Safety Report 15518024 (Version 1)
Quarter: 2018Q4

REPORT INFORMATION
  Report Type: Spontaneous
  Country: SK (occurrence: SK)
  Receive Date: 20181017
  Receipt Date: 20181017
  Transmission Date: 20190205
  Serious: Yes (Hospitalization, Other)
  Sender: FDA-Public Use
  Company Number: PHHY2018SK121633

PATIENT
  Age: 43 Year
  Sex: Female

DRUGS (1)
  1. GLIVEC [Suspect]
     Active Substance: IMATINIB MESYLATE
     Indication: CHRONIC MYELOID LEUKAEMIA
     Dosage: 600 MG, UNK
     Route: 048
     Dates: start: 200304, end: 201012

REACTIONS (12)
  - Toxicity to various agents [Unknown]
  - Generalised oedema [Recovered/Resolved]
  - Face oedema [Unknown]
  - Autoimmune haemolytic anaemia [Recovered/Resolved]
  - Hypokalaemia [Recovered/Resolved]
  - Fluid retention [Recovered/Resolved]
  - Arthralgia [Recovered/Resolved]
  - Myalgia [Recovered/Resolved]
  - Lacrimation increased [Unknown]
  - Headache [Recovered/Resolved]
  - Periorbital oedema [Unknown]
  - Muscle spasms [Recovered/Resolved]
